FAERS Safety Report 7972758-6 (Version None)
Quarter: 2011Q4

REPORT INFORMATION
  Report Type: 
  Country: None (occurrence: None)
  Receive Date: 20111213
  Receipt Date: 20111207
  Transmission Date: 20120403
  Serious: Yes (Death)
  Sender: FDA-Public Use
  Company Number: CA-ROCHE-1020319

PATIENT
  Sex: Female

DRUGS (8)
  1. TYKERB [Concomitant]
  2. ZOFRAN [Concomitant]
  3. IRON [Concomitant]
  4. SENOKOT [Concomitant]
  5. HERCEPTIN [Suspect]
     Indication: BREAST CANCER METASTATIC
     Route: 042
     Dates: start: 20100223, end: 20110916
  6. VITAMIN D [Concomitant]
  7. LOSEC (SOUTH AFRICA) [Concomitant]
  8. REMERON [Concomitant]

REACTIONS (1)
  - DEATH [None]
